FAERS Safety Report 8947966 (Version 1)
Quarter: 2012Q4

REPORT INFORMATION
  Report Type: 
  Country: US (occurrence: US)
  Receive Date: 20121204
  Receipt Date: 20121204
  Transmission Date: 20130627
  Serious: Yes (Other)
  Sender: FDA-Public Use
  Company Number: US-WATSON-2012-20914

PATIENT
  Age: 21 Year
  Sex: Male

DRUGS (1)
  1. PRIMIDONE [Suspect]
     Indication: PRODUCT USED FOR UNKNOWN INDICATION
     Dosage: UNK
     Route: 065

REACTIONS (3)
  - Convulsion [Unknown]
  - Adverse event [Unknown]
  - Drug ineffective [Unknown]
